FAERS Safety Report 24836358 (Version 1)
Quarter: 2025Q1

REPORT INFORMATION
  Report Type: Spontaneous
  Country: AU (occurrence: AU)
  Receive Date: 20250113
  Receipt Date: 20250113
  Transmission Date: 20250408
  Serious: Yes (Other)
  Sender: PFIZER
  Company Number: AU-PFIZER INC-PV202500003318

PATIENT
  Age: 65 Year
  Sex: Female

DRUGS (2)
  1. METHOTREXATE SODIUM [Suspect]
     Active Substance: METHOTREXATE SODIUM
     Indication: Rheumatoid arthritis
     Dosage: 7.5 MG, WEEKLY
  2. DOXEPIN [Concomitant]
     Active Substance: DOXEPIN
     Dosage: 50 MG, DAILY  (EACH NIGHT)

REACTIONS (1)
  - Mucosal inflammation [Unknown]
